FAERS Safety Report 18641796 (Version 1)
Quarter: 2020Q4

REPORT INFORMATION
  Report Type: Spontaneous
  Country: US (occurrence: US)
  Receive Date: 20201219
  Receipt Date: 20201219
  Transmission Date: 20210114
  Serious: Yes (Hospitalization, Other)
  Sender: FDA-Public Use
  Company Number: None

PATIENT
  Age: 37 Year
  Sex: Female
  Weight: 94.2 kg

DRUGS (14)
  1. MONTELUKAST 10MG PO DAILY [Concomitant]
  2. REMDESIVIR. [Concomitant]
     Active Substance: REMDESIVIR
     Dates: start: 20201130, end: 20201201
  3. CHOLECALCIFEROL 25MCG PO DAILY [Concomitant]
  4. SERTRALINE 50MG PO DAILY [Concomitant]
  5. GLIPIZIDE 10MG PO BID [Concomitant]
  6. INSULIN GLARGINE 10UNITS SUBQ DAILY [Concomitant]
  7. DULAGLUTIDE 0.75MG SUBQ EVERY SUNDAY [Concomitant]
  8. MELATONIN 9MG HS [Concomitant]
     Dates: start: 20201130, end: 20201201
  9. BAMLANIVIMAB. [Suspect]
     Active Substance: BAMLANIVIMAB
     Indication: COVID-19
     Dosage: ?          OTHER FREQUENCY:ONE TIME;?
     Route: 042
     Dates: start: 20201127, end: 20201127
  10. ACETAMINOPHEN. [Concomitant]
     Active Substance: ACETAMINOPHEN
     Dates: start: 20201127, end: 20201201
  11. BENZONATATE. [Concomitant]
     Active Substance: BENZONATATE
     Dates: start: 20201127, end: 20201201
  12. ENOXAPARIN 40MG SUBQ DAILY [Concomitant]
     Dates: start: 20201129, end: 20201201
  13. OMEPRAZOLE 20MG PO DAILY [Concomitant]
  14. DEXAMETHASONE 6MG PO DAILY [Concomitant]
     Active Substance: DEXAMETHASONE
     Dates: start: 20201129, end: 20201201

REACTIONS (5)
  - Dyspnoea [None]
  - Cough [None]
  - Pneumonia [None]
  - Heart rate increased [None]
  - Condition aggravated [None]

NARRATIVE: CASE EVENT DATE: 20201129
